FAERS Safety Report 6284352-6 (Version None)
Quarter: 2009Q3

REPORT INFORMATION
  Report Type: 
  Country: None (occurrence: None)
  Receive Date: 20090727
  Receipt Date: 20090716
  Transmission Date: 20100115
  Serious: Yes (Other)
  Sender: FDA-Public Use
  Company Number: US-AMGEN-QUU355280

PATIENT
  Sex: Female

DRUGS (2)
  1. ENBREL [Suspect]
     Indication: RHEUMATOID ARTHRITIS
     Route: 058
     Dates: start: 20050410
  2. VITAMIN TAB [Concomitant]
     Route: 048

REACTIONS (6)
  - ABDOMINAL PAIN [None]
  - ANAEMIA [None]
  - GESTATIONAL DIABETES [None]
  - MENORRHAGIA [None]
  - PREGNANCY INDUCED HYPERTENSION [None]
  - RHEUMATOID ARTHRITIS [None]
